FAERS Safety Report 6829499-8 (Version None)
Quarter: 2010Q3

REPORT INFORMATION
  Report Type: 
  Country: None (occurrence: None)
  Receive Date: 20100709
  Receipt Date: 20070321
  Transmission Date: 20110219
  Serious: No
  Sender: FDA-Public Use
  Company Number: US-PFIZER INC-2007008797

PATIENT
  Sex: Male
  Weight: 127.01 kg

DRUGS (7)
  1. CHANTIX [Suspect]
     Indication: SMOKING CESSATION THERAPY
     Route: 048
     Dates: start: 20070120
  2. LUNESTA [Concomitant]
  3. SPIRIVA [Concomitant]
  4. DILTIAZEM [Concomitant]
  5. ADVAIR DISKUS 100/50 [Concomitant]
  6. VITAMINS [Concomitant]
  7. PROTONIX [Concomitant]

REACTIONS (3)
  - ASTHENOPIA [None]
  - FATIGUE [None]
  - SOMNOLENCE [None]
